FAERS Safety Report 7691689-2 (Version None)
Quarter: 2011Q3

REPORT INFORMATION
  Report Type: 
  Country: None (occurrence: None)
  Receive Date: 20110818
  Receipt Date: 20110802
  Transmission Date: 20111222
  Serious: Yes (Hospitalization)
  Sender: FDA-Public Use
  Company Number: US-GLAXOSMITHKLINE-A0842393A

PATIENT
  Age: 69 Year
  Sex: Male

DRUGS (5)
  1. GLYBURIDE [Concomitant]
  2. ATARAX [Concomitant]
  3. AVANDIA [Suspect]
     Indication: DIABETES MELLITUS
     Dosage: 8MG PER DAY
     Route: 048
     Dates: start: 20060101, end: 20070501
  4. BENADRYL [Concomitant]
  5. ZYRTEC [Concomitant]

REACTIONS (1)
  - ACUTE MYOCARDIAL INFARCTION [None]
